FAERS Safety Report 26165170 (Version 1)
Quarter: 2025Q4

REPORT INFORMATION
  Report Type: Report from Study
  Country: EU (occurrence: None)
  Receive Date: 20251216
  Receipt Date: 20251216
  Transmission Date: 20260117
  Serious: Yes (Other)
  Sender: UCB
  Company Number: EU-UCBSA-2021010692

PATIENT

DRUGS (2)
  1. CERTOLIZUMAB PEGOL [Suspect]
     Active Substance: CERTOLIZUMAB PEGOL
     Indication: Psoriasis
     Dosage: UNK
  2. METHOTREXATE [Concomitant]
     Active Substance: METHOTREXATE
     Indication: Product used for unknown indication

REACTIONS (33)
  - COVID-19 pneumonia [Unknown]
  - Urticaria [Unknown]
  - Metabolic surgery [Unknown]
  - Poisoning [Unknown]
  - Hepatitis toxic [Unknown]
  - Neoplasm [Unknown]
  - Infection [Unknown]
  - Skin disorder [Unknown]
  - Gastrointestinal disorder [Unknown]
  - Nervous system disorder [Unknown]
  - Musculoskeletal disorder [Unknown]
  - Respiratory disorder [Unknown]
  - Surgery [Unknown]
  - Hepatobiliary disease [Unknown]
  - Administration site reaction [Unknown]
  - Metabolic disorder [Unknown]
  - Mental disorder [Unknown]
  - Immune system disorder [Unknown]
  - Cardiac disorder [Unknown]
  - Blood disorder [Unknown]
  - Breast disorder [Unknown]
  - Reproductive tract disorder [Unknown]
  - Infestation [Unknown]
  - Injury [Unknown]
  - Procedural complication [Unknown]
  - Eye disorder [Unknown]
  - Renal disorder [Unknown]
  - Urinary tract disorder [Unknown]
  - Endocrine disorder [Unknown]
  - Inner ear disorder [Unknown]
  - Herpes zoster [Unknown]
  - Investigation [Unknown]
  - Angiopathy [Unknown]
